FAERS Safety Report 4918557-0 (Version None)
Quarter: 2006Q1

REPORT INFORMATION
  Report Type: 
  Country: None (occurrence: None)
  Receive Date: 20060214
  Receipt Date: 20060127
  Transmission Date: 20060701
  Serious: Yes (Hospitalization)
  Sender: FDA-Public Use
  Company Number: DK200601005245

PATIENT
  Age: 21 Year
  Sex: Female

DRUGS (2)
  1. DULOXETINE HYDROCHLORIDE(DULOXETINE HYDROCHLORIDE) CAPSULE [Suspect]
     Indication: DEPRESSION
     Dosage: 90 MG, DAILY (1/D), ORAL
     Route: 048
     Dates: start: 20051101, end: 20060101
  2. DULOXETINE HYDROCHLORIDE(DULOXETINE HYDROCHLORIDE) CAPSULE [Suspect]
     Indication: DEPRESSION
     Dosage: 90 MG, DAILY (1/D), ORAL
     Route: 048
     Dates: start: 20060101

REACTIONS (4)
  - ANXIETY [None]
  - MALAISE [None]
  - PANIC DISORDER [None]
  - SUICIDAL IDEATION [None]
